FAERS Safety Report 12932973 (Version 1)
Quarter: 2016Q4

REPORT INFORMATION
  Report Type: Spontaneous
  Country: PE (occurrence: PE)
  Receive Date: 20161111
  Receipt Date: 20161111
  Transmission Date: 20170207
  Serious: Yes (Other)
  Sender: FDA-Public Use
  Company Number: PE-PFIZER INC-2016520895

PATIENT
  Age: 89 Year
  Sex: Female

DRUGS (1)
  1. LYRICA [Suspect]
     Active Substance: PREGABALIN
     Dosage: 25 MG, DAILY (1 CAPSULE PER NIGHT FOR 5 DAYS AND THEN FOR 6 MONTHS)

REACTIONS (2)
  - Diabetes mellitus [Unknown]
  - Product use issue [Unknown]
